FAERS Safety Report 9678642 (Version 2)
Quarter: 2013Q4

REPORT INFORMATION
  Report Type: Spontaneous
  Country: CH (occurrence: CH)
  Receive Date: 20131108
  Receipt Date: 20131108
  Transmission Date: 20140711
  Serious: Yes (Other)
  Sender: FDA-Public Use
  Company Number: CH-AMGEN-CHESP2013056067

PATIENT
  Age: 44 Year
  Sex: Male

DRUGS (2)
  1. ENBREL [Suspect]
     Indication: ANKYLOSING SPONDYLITIS
     Dosage: 50 MG, WEEKLY
     Route: 058
     Dates: start: 20130508, end: 20130708
  2. ENBREL [Suspect]
     Dosage: 50 MG, ONCE EVERY 10 DAYS
     Route: 065
     Dates: start: 20130806

REACTIONS (1)
  - Dermatosis [Recovered/Resolved]
